FAERS Safety Report 18238549 (Version 11)
Quarter: 2021Q3

REPORT INFORMATION
  Report Type: Spontaneous
  Country: US (occurrence: US)
  Receive Date: 20200907
  Receipt Date: 20210804
  Transmission Date: 20211014
  Serious: No
  Sender: FDA-Public Use
  Company Number: US-PFIZER INC-2020344253

PATIENT
  Age: 55 Year
  Sex: Female

DRUGS (7)
  1. CHANTIX [Suspect]
     Active Substance: VARENICLINE TARTRATE
     Indication: TOBACCO ABUSE
     Dosage: 0.5 MG (11)?1MG (42) TABLETS, AS DIRECTED IN THE PACKAGE
     Dates: start: 20201009
  2. ADVAIR HFA [Concomitant]
     Active Substance: FLUTICASONE PROPIONATE\SALMETEROL XINAFOATE
     Indication: DYSPNOEA
     Dosage: 1 DF, DAILY [1 DF =250/50, INHALE ONE DOSE BY MOUTH DAILY]
     Route: 048
  3. CHANTIX [Suspect]
     Active Substance: VARENICLINE TARTRATE
     Indication: SMOKING CESSATION THERAPY
     Dosage: 0.5 MG (11)?1MG (42) TABLETS, AS DIRECTED IN THE PACKAGE
     Dates: start: 20201021
  4. CHANTIX [Suspect]
     Active Substance: VARENICLINE TARTRATE
     Dosage: 0.5 MG, 2X/DAY (TAKE 1 TABLET (1 MG TOTAL) BY MOUTH 2 TIMES A DAY. TAKE WITH FULL GLASS OF WATER)
     Route: 048
     Dates: start: 20201102
  5. CHANTIX [Suspect]
     Active Substance: VARENICLINE TARTRATE
     Dosage: 1 MG, 2X/DAY; TAKE WITH FULL GLASS OF WATER
     Route: 048
     Dates: start: 20201215
  6. CITALOPRAM [Concomitant]
     Active Substance: CITALOPRAM HYDROBROMIDE
     Indication: ANXIETY
     Dosage: 10 G, 1X/DAY
  7. LEVOTHYROXINE. [Concomitant]
     Active Substance: LEVOTHYROXINE
     Dosage: 137 UG, 1X/DAY

REACTIONS (5)
  - Product dispensing error [Unknown]
  - Drug ineffective [Unknown]
  - Abdominal discomfort [Unknown]
  - Product label confusion [Unknown]
  - Cough [Unknown]
